FAERS Safety Report 24168742 (Version 1)
Quarter: 2024Q3

REPORT INFORMATION
  Report Type: Report from Study
  Country: GB (occurrence: GB)
  Receive Date: 20240802
  Receipt Date: 20240802
  Transmission Date: 20241016
  Serious: Yes (Other)
  Sender: BAXTER
  Company Number: GB-BAXTER-2024BAX022170

PATIENT
  Sex: Male

DRUGS (3)
  1. SODIUM CHLORIDE [Suspect]
     Active Substance: SODIUM CHLORIDE
     Indication: Parenteral nutrition
     Dosage: 500MLS X 2 TWICE WEEKLY OVER 12 HOURS, EVERY MONDAY + THURSDAY OVER 12 HOURS FROM APPROX 8 PM TO 8 A
     Route: 065
  2. MAGNESIUM SULFATE [Suspect]
     Active Substance: MAGNESIUM SULFATE\MAGNESIUM SULFATE HEPTAHYDRATE
     Indication: Parenteral nutrition
     Dosage: 10 MMOLS TWICE WEEKLY OVER 12 HOURS VIA A PICC LINE, EVERY MONDAY + THURSDAY OVER 12 HOURS FROM APPR
     Route: 065
  3. UNSPECIFIED INGREDIENT [Suspect]
     Active Substance: UNSPECIFIED INGREDIENT
     Dosage: UNK
     Route: 065

REACTIONS (3)
  - Malaise [Recovering/Resolving]
  - Heart rate increased [Recovering/Resolving]
  - Sleep disorder [Recovering/Resolving]
